FAERS Safety Report 12817767 (Version 1)
Quarter: 2016Q4

REPORT INFORMATION
  Report Type: Report from Study
  Country: US (occurrence: US)
  Receive Date: 20161006
  Receipt Date: 20161006
  Transmission Date: 20170207
  Serious: Yes (Hospitalization, Other)
  Sender: FDA-Public Use
  Company Number: US-ROCHE-1754060

PATIENT
  Age: 68 Year
  Sex: Female
  Weight: 50.45 kg

DRUGS (16)
  1. VELIPARIB [Suspect]
     Active Substance: VELIPARIB
     Route: 048
     Dates: start: 20150225
  2. PACLITAXEL. [Suspect]
     Active Substance: PACLITAXEL
     Indication: OVARIAN EPITHELIAL CANCER
     Dosage: OVER 1 HR ON DAYS 1, 8,15 OF CYCLE 1
     Route: 042
     Dates: start: 20141022
  3. VELIPARIB [Suspect]
     Active Substance: VELIPARIB
     Dosage: ON DAYS 2- 5 OF CYCLE 2-6?DATE OF LAST DOSE ADMINISTERED: 23/FEB/2015
     Route: 048
  4. VELIPARIB [Suspect]
     Active Substance: VELIPARIB
     Dosage: RECEIVED ON 17/DEC/2014, 07/JAN/2015, 02/FEB/2015
     Route: 048
     Dates: start: 20141024
  5. BEVACIZUMAB [Suspect]
     Active Substance: BEVACIZUMAB
     Dosage: OVER 30-90 MINS ON DAY 1 (CYCLES 7-22)?DATE OF LAST DOSE ADMINISTERED: 02/DEC/2015
     Route: 042
  6. CARBOPLATIN. [Suspect]
     Active Substance: CARBOPLATIN
     Indication: OVARIAN EPITHELIAL CANCER
     Dosage: AUC: 6?OVER 30 MINS ON DAY 1 OF CYCLE 1
     Route: 042
     Dates: start: 20141022
  7. BEVACIZUMAB [Suspect]
     Active Substance: BEVACIZUMAB
     Route: 042
     Dates: start: 20141024
  8. BEVACIZUMAB [Suspect]
     Active Substance: BEVACIZUMAB
     Dosage: 02/DEC/2015
     Route: 042
     Dates: start: 20150225
  9. BEVACIZUMAB [Suspect]
     Active Substance: BEVACIZUMAB
     Dosage: RECEIVED ON 17/DEC/2014, 07/JAN/2015, 02/FEB/2015
     Route: 042
     Dates: start: 20141126
  10. CARBOPLATIN. [Suspect]
     Active Substance: CARBOPLATIN
     Dosage: AUC: 6?OVER 30 MINS ON DAY 1 (CYCLE 2-6)
     Route: 042
  11. BEVACIZUMAB [Suspect]
     Active Substance: BEVACIZUMAB
     Indication: OVARIAN EPITHELIAL CANCER
     Dosage: TOTAL DOSE ADMINISTERED: 741 MG; OVER 30-90 MINS ON DAY 1 (CYCLES 2-6)
     Route: 042
     Dates: start: 20151202
  12. BEVACIZUMAB [Suspect]
     Active Substance: BEVACIZUMAB
     Dosage: RECEIVED ON 18/MAR/2015, 08/APR/2015, 29/APR/2015, 20/MAY/2015, 10/JUN/2015, 01/JUL/2015, 22/JUL/201
     Route: 042
     Dates: start: 20150225
  13. VELIPARIB [Suspect]
     Active Substance: VELIPARIB
     Indication: OVARIAN EPITHELIAL CANCER
     Dosage: ON DAY 2- 5 CYCLE 1
     Route: 048
     Dates: start: 20141022
  14. VELIPARIB [Suspect]
     Active Substance: VELIPARIB
     Route: 048
     Dates: start: 20141126
  15. VELIPARIB [Suspect]
     Active Substance: VELIPARIB
     Dosage: RECEIVED ON 08/APR/2015, 29/APR/2015, 20/MAY/2015, 10/JUN/2015, 01/JUL/2015, 22/JUL/2015, 12/AUG/201
     Route: 048
     Dates: start: 20150318
  16. PACLITAXEL. [Suspect]
     Active Substance: PACLITAXEL
     Dosage: OVER 1 HR ON DAYS 1, 8,15 OF CYCLE 2-6
     Route: 042

REACTIONS (5)
  - Dyspnoea [Recovered/Resolved]
  - Anaemia [Unknown]
  - Left ventricular dysfunction [Recovered/Resolved]
  - Hypertension [Unknown]
  - Neutrophil count decreased [Unknown]

NARRATIVE: CASE EVENT DATE: 20151218
